FAERS Safety Report 7251658-3 (Version None)
Quarter: 2011Q1

REPORT INFORMATION
  Report Type: 
  Country: None (occurrence: None)
  Receive Date: 20110128
  Receipt Date: 20110118
  Transmission Date: 20110831
  Serious: Yes (Life-Threatening)
  Sender: FDA-Public Use
  Company Number: IT-BAYER-2011-005833

PATIENT
  Sex: Female

DRUGS (5)
  1. PAROXETINE HCL [Concomitant]
     Dosage: 10 MG, QD
     Route: 048
  2. CIPROXIN [Suspect]
     Indication: URINARY TRACT INFECTION
     Dosage: 400 MG, QD
     Route: 042
     Dates: start: 20110105, end: 20110108
  3. ZYLORIC [Concomitant]
     Dosage: 300 MG, QD
     Route: 048
  4. CLEXANE [Concomitant]
     Dosage: 6000 IU, QD
     Route: 058
  5. LANSOPRAZOLE [Concomitant]
     Dosage: 30 MG, QD
     Route: 048

REACTIONS (1)
  - HYPOGLYCAEMIC COMA [None]
